FAERS Safety Report 18931615 (Version 1)
Quarter: 2021Q1

REPORT INFORMATION
  Report Type: Spontaneous
  Country: US (occurrence: US)
  Receive Date: 20210223
  Receipt Date: 20210223
  Transmission Date: 20210420
  Serious: No
  Sender: FDA-Public Use
  Company Number: US-IGSA-SR10010079

PATIENT
  Age: 50 Year
  Sex: Male
  Weight: 113.6 kg

DRUGS (4)
  1. LISINOPRIL. [Concomitant]
     Active Substance: LISINOPRIL
  2. SINGULAIR [Concomitant]
     Active Substance: MONTELUKAST SODIUM
  3. PROLASTIN?C LIQUID [Suspect]
     Active Substance: .ALPHA.1-PROTEINASE INHIBITOR HUMAN
     Dosage: 6816 MG, Q.WK.
     Route: 042
     Dates: start: 20200311
  4. PROLASTIN?C LIQUID [Suspect]
     Active Substance: .ALPHA.1-PROTEINASE INHIBITOR HUMAN
     Indication: ALPHA-1 ANTITRYPSIN DEFICIENCY
     Dosage: UNK UNK, Q.WK.
     Route: 042
     Dates: start: 20190502

REACTIONS (6)
  - Sinusitis [Recovering/Resolving]
  - Cough [Recovering/Resolving]
  - Bronchitis [Recovering/Resolving]
  - Sinus congestion [Not Recovered/Not Resolved]
  - Productive cough [Recovering/Resolving]
  - Condition aggravated [Recovering/Resolving]

NARRATIVE: CASE EVENT DATE: 20190502
